FAERS Safety Report 21016842 (Version 1)
Quarter: 2022Q2

REPORT INFORMATION
  Report Type: Spontaneous
  Country: DE (occurrence: DE)
  Receive Date: 20220628
  Receipt Date: 20220628
  Transmission Date: 20220720
  Serious: Yes (Other)
  Sender: FDA-Public Use
  Company Number: DE-ROCHE-3098195

PATIENT
  Sex: Male

DRUGS (6)
  1. PACLITAXEL [Suspect]
     Active Substance: PACLITAXEL
     Indication: Breast cancer
     Dosage: WITH LOADING DOSE HERCEPTIN I.V. 6 MG/KG
     Route: 065
  2. HERCEPTIN [Suspect]
     Active Substance: TRASTUZUMAB
     Indication: Breast cancer
     Dosage: UNK
     Route: 058
     Dates: start: 20211001
  3. HERCEPTIN [Suspect]
     Active Substance: TRASTUZUMAB
     Dosage: 600 MILLIGRAM (COURSE 4 TO 18)
     Route: 058
  4. HERCEPTIN [Suspect]
     Active Substance: TRASTUZUMAB
     Dosage: 8 MILLIGRAM/KILOGRAM (IN COMBINATION WITH PACLITAXEL)
     Route: 058
     Dates: start: 20210820
  5. HERCEPTIN [Suspect]
     Active Substance: TRASTUZUMAB
     Dosage: 6 MILLIGRAM/SQ. METER( MAINTENANCE DOSE WITH ABRAXANE)
     Route: 042
     Dates: start: 20210910
  6. ABRAXANE [Suspect]
     Active Substance: PACLITAXEL
     Indication: Breast cancer
     Dosage: TWO TIMES IN COMBINATION WITH HERCEPTIN MAINTENANCE DOSE
     Route: 042

REACTIONS (3)
  - Cardiac failure [Unknown]
  - Hypersensitivity [Unknown]
  - Ejection fraction decreased [Recovered/Resolved]

NARRATIVE: CASE EVENT DATE: 20211021
